FAERS Safety Report 4516278-X (Version None)
Quarter: 2004Q4

REPORT INFORMATION
  Report Type: 
  Country: None (occurrence: None)
  Receive Date: 20041005
  Receipt Date: 20031205
  Transmission Date: 20050328
  Serious: Yes (Other)
  Sender: FDA-Public Use
  Company Number: 04-020-0772

PATIENT
  Sex: Female
  Weight: 89.8122 kg

DRUGS (12)
  1. HALOPERIDOL DECANOATE [Suspect]
     Indication: PSYCHOTIC DISORDER
     Dosage: 200 MG IM Q3 WEEKS
     Route: 030
     Dates: start: 20030114
  2. HALOPERIDOL DECANOATE [Suspect]
     Indication: PSYCHOTIC DISORDER
     Dosage: 200 MG IM Q3 WEEKS
     Route: 030
     Dates: start: 20031203
  3. NORVASC [Concomitant]
  4. TEFORMIN [Concomitant]
  5. PEPCID [Concomitant]
  6. PROZAC [Concomitant]
  7. HALDOL [Concomitant]
  8. ZYPREXA ZYDIS [Concomitant]
  9. ACTONE [Concomitant]
  10. VITE [Concomitant]
  11. LAMCITA [Concomitant]
  12. CIPRO [Concomitant]

REACTIONS (1)
  - INJECTION SITE REACTION [None]
